FAERS Safety Report 9887521 (Version 1)
Quarter: 2014Q1

REPORT INFORMATION
  Report Type: Spontaneous
  Country: US (occurrence: US)
  Receive Date: 20140211
  Receipt Date: 20140211
  Transmission Date: 20141002
  Serious: No
  Sender: FDA-Public Use
  Company Number: US-BAYER-2014-011763

PATIENT
  Age: 61 Year
  Sex: Male
  Weight: 112 kg

DRUGS (3)
  1. LEVITRA [Suspect]
     Indication: ERECTILE DYSFUNCTION
     Dosage: UNK
     Dates: start: 201305
  2. TESTOSTERONE GEL [Suspect]
     Indication: BLOOD TESTOSTERONE DECREASED
     Dosage: UNK UNK, OW
     Route: 065
     Dates: start: 20130406, end: 201307
  3. TESTOPEL [Suspect]
     Indication: PRODUCT USED FOR UNKNOWN INDICATION
     Dosage: UNK
     Route: 065
     Dates: start: 201305

REACTIONS (6)
  - Dysphonia [None]
  - Hair growth abnormal [None]
  - Swelling [None]
  - Somnolence [None]
  - Hypersomnia [None]
  - Medication error [None]
